FAERS Safety Report 4622280-X (Version None)
Quarter: 2005Q1

REPORT INFORMATION
  Report Type: 
  Country: None (occurrence: None)
  Receive Date: 20050328
  Receipt Date: 20050316
  Transmission Date: 20050727
  Serious: Yes (Hospitalization)
  Sender: FDA-Public Use
  Company Number: USA-2005-0019368

PATIENT
  Age: 47 Year
  Sex: Male

DRUGS (1)
  1. CEFDITOREN PIVOXIL(SIMILAR TO NDA 21-222) (CEFDITOREN PIVOXIL) OTHER [Suspect]
     Dosage: 300 MG, ORAL
     Route: 048
     Dates: start: 20050126, end: 20050127

REACTIONS (2)
  - LOCALISED OEDEMA [None]
  - STEVENS-JOHNSON SYNDROME [None]
